FAERS Safety Report 7076605-9 (Version None)
Quarter: 2010Q4

REPORT INFORMATION
  Report Type: 
  Country: None (occurrence: None)
  Receive Date: 20101101
  Receipt Date: 20101019
  Transmission Date: 20110411
  Serious: Yes (Hospitalization)
  Sender: FDA-Public Use
  Company Number: SE-PFIZER INC-2010133640

PATIENT
  Age: 72 Year
  Sex: Female
  Weight: 57 kg

DRUGS (13)
  1. LYRICA [Suspect]
  2. REVLIMID [Suspect]
     Indication: MULTIPLE MYELOMA
     Dosage: 25 MG, 21/28 DAYS
     Route: 048
     Dates: start: 20100811, end: 20100824
  3. REVLIMID [Suspect]
     Dosage: 15 MG, 1X/DAY
     Route: 048
     Dates: start: 20100929
  4. DEXAMETHASONE [Suspect]
     Indication: MULTIPLE MYELOMA
     Dosage: 160 MG, MONTHLY
     Route: 048
     Dates: start: 20100811, end: 20100824
  5. DEXAMETHASONE [Suspect]
     Dosage: 5.333 MG, MONTHLY
     Route: 048
     Dates: start: 20100929
  6. PRONAXEN [Suspect]
  7. LACTULOSE [Concomitant]
     Indication: CONSTIPATION
     Dosage: 20 ML, 1X/DAY
     Route: 048
     Dates: start: 20100721
  8. AMLODIPINE [Concomitant]
     Indication: HYPERTENSION
     Dosage: 5 MG, 1X/DAY
     Route: 048
     Dates: start: 20100407
  9. PANADOL [Concomitant]
     Indication: PAIN
     Dosage: 4 G, 4X/DAY
     Route: 048
     Dates: start: 20091126
  10. SODIUM PICOSULFATE [Concomitant]
     Indication: CONSTIPATION
     Dosage: 10-15 DROPS
     Route: 048
     Dates: start: 20100407
  11. MORFIN [Concomitant]
     Indication: PAIN
     Dosage: 5 MG, 4X/DAY
     Route: 048
     Dates: start: 20091009
  12. DOLCONTIN [Concomitant]
     Indication: PAIN
     Dosage: 20 MG, 2X/DAY
     Route: 048
     Dates: start: 20091009
  13. DOLCONTIN [Concomitant]
     Dosage: 5 MG, 1X/DAY
     Route: 048
     Dates: start: 20100913

REACTIONS (3)
  - DEHYDRATION [None]
  - DIVERTICULITIS [None]
  - RENAL FAILURE ACUTE [None]
